FAERS Safety Report 15313126 (Version 2)
Quarter: 2018Q3

REPORT INFORMATION
  Report Type: Spontaneous
  Country: US (occurrence: US)
  Receive Date: 20180823
  Receipt Date: 20180921
  Transmission Date: 20181010
  Serious: No
  Sender: FDA-Public Use
  Company Number: US-NEUROCRINE BIOSCIENCES INC.-2018NBI02386

PATIENT
  Sex: Female
  Weight: 59 kg

DRUGS (15)
  1. SERTRALINE [Concomitant]
     Active Substance: SERTRALINE HYDROCHLORIDE
  2. MULTIPLE VITAMIN W/IRON [Concomitant]
  3. DOCUSATE SODIUM. [Concomitant]
     Active Substance: DOCUSATE SODIUM
  4. GABAPENTIN. [Concomitant]
     Active Substance: GABAPENTIN
  5. METOPROLOL TARTRATE. [Concomitant]
     Active Substance: METOPROLOL TARTRATE
  6. OXYBUTYNIN. [Concomitant]
     Active Substance: OXYBUTYNIN CHLORIDE
  7. INGREZZA [Suspect]
     Active Substance: VALBENAZINE
     Route: 048
     Dates: start: 20180803
  8. FOLIC ACID. [Concomitant]
     Active Substance: FOLIC ACID
  9. INGREZZA [Suspect]
     Active Substance: VALBENAZINE
     Indication: TARDIVE DYSKINESIA
     Route: 048
     Dates: start: 20180727, end: 20180802
  10. POTASSIUM [Concomitant]
     Active Substance: POTASSIUM
  11. LEVOTHYROXINE. [Concomitant]
     Active Substance: LEVOTHYROXINE
  12. MIRTAZAPINE. [Concomitant]
     Active Substance: MIRTAZAPINE
  13. QUETIAPINE. [Concomitant]
     Active Substance: QUETIAPINE
  14. CLONAZEPAM. [Concomitant]
     Active Substance: CLONAZEPAM
  15. OXYCODONE [Concomitant]
     Active Substance: OXYCODONE

REACTIONS (2)
  - Drug ineffective [None]
  - Tremor [Not Recovered/Not Resolved]

NARRATIVE: CASE EVENT DATE: 2018
